FAERS Safety Report 4310966-6 (Version None)
Quarter: 2004Q1

REPORT INFORMATION
  Report Type: 
  Country: None (occurrence: None)
  Receive Date: 20040304
  Receipt Date: 20040212
  Transmission Date: 20041129
  Serious: Yes (Other)
  Sender: FDA-Public Use
  Company Number: 200410339JP

PATIENT
  Age: 6 Month
  Sex: Female
  Weight: 1.54 kg

DRUGS (7)
  1. LASIX [Suspect]
     Indication: PULMONARY CONGESTION
     Route: 041
     Dates: start: 20030129, end: 20030603
  2. DIGOSIN [Concomitant]
     Indication: CARDIOMEGALY
     Route: 048
     Dates: start: 20030424
  3. ALDACTONE [Concomitant]
     Indication: PULMONARY CONGESTION
     Route: 048
     Dates: start: 20030212
  4. INCREMIN [Concomitant]
     Indication: ANAEMIA
     Route: 048
     Dates: start: 20030303
  5. PANVITAN [Concomitant]
     Indication: MALNUTRITION
     Route: 048
     Dates: start: 20030204
  6. ESPO [Concomitant]
     Indication: ANAEMIA
     Route: 058
     Dates: start: 20030508, end: 20030630
  7. SODIUM CHLORIDE INJ [Concomitant]
     Indication: HYPONATRAEMIA
     Route: 048
     Dates: start: 20030417

REACTIONS (8)
  - ALKALOSIS HYPOCHLORAEMIC [None]
  - BLOOD CHLORIDE INCREASED [None]
  - BLOOD SODIUM INCREASED [None]
  - ELECTROLYTE IMBALANCE [None]
  - HEPATOBLASTOMA [None]
  - HYPERCALCAEMIA [None]
  - HYPERPARATHYROIDISM [None]
  - NEPHROGENIC DIABETES INSIPIDUS [None]
